FAERS Safety Report 4392320-4 (Version None)
Quarter: 2004Q3

REPORT INFORMATION
  Report Type: 
  Country: None (occurrence: None)
  Receive Date: 20040702
  Receipt Date: 20040304
  Transmission Date: 20050211
  Serious: Yes (Other)
  Sender: FDA-Public Use
  Company Number: 2004UW04075

PATIENT
  Age: 48 Year
  Sex: Female
  Weight: 74.8435 kg

DRUGS (2)
  1. CRESTOR [Suspect]
  2. TOPROL-XL [Suspect]
     Indication: BLOOD CHOLESTEROL

REACTIONS (2)
  - NAUSEA [None]
  - PAIN [None]
